FAERS Safety Report 22244605 (Version 1)
Quarter: 2023Q2

REPORT INFORMATION
  Report Type: Other
  Country: CA (occurrence: CA)
  Receive Date: 20230424
  Receipt Date: 20230424
  Transmission Date: 20230722
  Serious: Yes (Other)
  Sender: FDA-Public Use
  Company Number: CA-CELLTRION INC.-2023CA008296

PATIENT

DRUGS (25)
  1. RITUXIMAB [Suspect]
     Active Substance: RITUXIMAB
     Indication: Glomerulonephritis membranous
     Dosage: 1000.0 MILLIGRAM
     Route: 042
  2. RITUXIMAB [Suspect]
     Active Substance: RITUXIMAB
     Dosage: UNK
     Route: 041
  3. ACETAMINOPHEN [Concomitant]
     Active Substance: ACETAMINOPHEN
     Dosage: 650.0 MILLIGRAM
     Route: 048
  4. PERINDOPRIL ARGININE [Concomitant]
     Active Substance: PERINDOPRIL ARGININE
     Dosage: 4.0 MILLIGRAM, 1 EVERY 1 DAYS
     Route: 048
  5. CALCIUM [Concomitant]
     Active Substance: CALCIUM
     Dosage: 650.0 MILLIGRAM, 2 EVERY 1 DAYS
     Route: 048
  6. CHOLECALCIFEROL [Concomitant]
     Active Substance: CHOLECALCIFEROL
     Dosage: 1 EVERY 1 DAYS
     Route: 048
  7. DIPHENHYDRAMINE HYDROCHLORIDE [Concomitant]
     Active Substance: DIPHENHYDRAMINE HYDROCHLORIDE
     Dosage: 50.0 MILLIGRAM
     Route: 048
  8. HUMALOG [Concomitant]
     Active Substance: INSULIN LISPRO
     Route: 058
  9. LASIX [Concomitant]
     Active Substance: FUROSEMIDE
     Dosage: 60.0 MILLIGRAM, 2 EVERY 1 DAYS
     Route: 048
  10. LASIX [Concomitant]
     Active Substance: FUROSEMIDE
     Dosage: 20.0 MILLIGRAM, 2 EVERY 1 DAYS
     Route: 048
  11. LEVOTHYROXINE SODIUM [Concomitant]
     Active Substance: LEVOTHYROXINE SODIUM
     Dosage: 212.5 MICROGRAM, 1 EVERY 1 DAYS
     Route: 065
  12. LIPITOR [Concomitant]
     Active Substance: ATORVASTATIN CALCIUM
     Indication: Hyperlipidaemia
     Dosage: 10.0 MILLIGRAM, 1 EVERY 1 DAYS
     Route: 048
  13. MAGNESIUM OXIDE [Concomitant]
     Active Substance: MAGNESIUM OXIDE
     Dosage: 500.0 MILLIGRAM, 2 EVERY 1 DAYS
     Route: 048
  14. METHYLPREDNISOLONE [Concomitant]
     Active Substance: METHYLPREDNISOLONE
     Dosage: 100.0 MILLIGRAM
     Route: 042
  15. NEOMYCIN SULFATE;PREDNISOLONE SODIUM PHOSPHATE [Concomitant]
     Dosage: 5.0 MILLIGRAM, 1 EVERY 1 DAYS
     Route: 048
  16. OMEPRAZOLE SODIUM [Concomitant]
     Active Substance: OMEPRAZOLE SODIUM
     Indication: Gastrooesophageal reflux disease
     Dosage: 20.0 MILLIGRAM, 1 EVERY 1 DAYS
     Route: 048
  17. PROGRAF [Concomitant]
     Active Substance: TACROLIMUS
     Dosage: 1.0 MILLIGRAM, 2 EVERY 1 DAYS
     Route: 048
  18. PROGRAF [Concomitant]
     Active Substance: TACROLIMUS
     Route: 065
  19. PROGRAF [Concomitant]
     Active Substance: TACROLIMUS
     Dosage: 4.0 MILLIGRAM, 2 EVERY 1 DAYS
     Route: 048
  20. SERTRALINE HYDROCHLORIDE [Concomitant]
     Active Substance: SERTRALINE HYDROCHLORIDE
     Indication: Depression
     Dosage: UNK
  21. SERTRALINE HYDROCHLORIDE [Concomitant]
     Active Substance: SERTRALINE HYDROCHLORIDE
     Indication: Anxiety
  22. SERTRALINE HYDROCHLORIDE [Concomitant]
     Active Substance: SERTRALINE HYDROCHLORIDE
     Indication: Depression
     Dosage: 100.0 MILLIGRAM, 1 EVERY 1 DAYS
     Route: 048
  23. SERTRALINE HYDROCHLORIDE [Concomitant]
     Active Substance: SERTRALINE HYDROCHLORIDE
     Indication: Anxiety
  24. TRANEXAMIC ACID [Concomitant]
     Active Substance: TRANEXAMIC ACID
     Indication: Heavy menstrual bleeding
     Dosage: 500.0 MILLIGRAM, 1 EVERY 1 DAYS
     Route: 048
  25. XARELTO [Concomitant]
     Active Substance: RIVAROXABAN
     Indication: Embolism venous
     Dosage: 10.0 MILLIGRAM, 1 EVERY 1 DAYS
     Route: 048

REACTIONS (10)
  - Chest discomfort [Recovered/Resolved]
  - Pruritus [Recovered/Resolved]
  - Cough [Recovered/Resolved]
  - Drug hypersensitivity [Recovered/Resolved]
  - Dyspnoea [Recovered/Resolved]
  - Erythema [Recovered/Resolved]
  - Throat tightness [Recovered/Resolved]
  - Urticaria [Recovered/Resolved]
  - Off label use [Recovered/Resolved]
  - Off label use [Unknown]
